FAERS Safety Report 13922678 (Version 1)
Quarter: 2017Q3

REPORT INFORMATION
  Report Type: Spontaneous
  Country: US (occurrence: US)
  Receive Date: 20170830
  Receipt Date: 20170830
  Transmission Date: 20171127
  Serious: Yes (Death)
  Sender: FDA-Public Use
  Company Number: US-BAUSCH-BL-2017-025535

PATIENT
  Sex: Male

DRUGS (1)
  1. XIFAXAN [Suspect]
     Active Substance: RIFAXIMIN
     Indication: HEPATIC CIRRHOSIS
     Dosage: FOR APPROXIMATELY TWO AND HALF YEARS
     Route: 065
     Dates: start: 2015

REACTIONS (3)
  - Cardiac failure [Fatal]
  - Hepatic cancer [Fatal]
  - Renal failure [Fatal]
